FAERS Safety Report 15978812 (Version 1)
Quarter: 2019Q1

REPORT INFORMATION
  Report Type: Report from Study
  Country: US (occurrence: US)
  Receive Date: 20190219
  Receipt Date: 20190219
  Transmission Date: 20190418
  Serious: Yes (Hospitalization, Other)
  Sender: FDA-Public Use
  Company Number: US-SA-2019SA041528

PATIENT
  Age: 80 Year
  Sex: Female

DRUGS (1)
  1. INSULIN GLARGINE [Suspect]
     Active Substance: INSULIN GLARGINE
     Indication: TYPE 2 DIABETES MELLITUS
     Dosage: 46 U, BID
     Route: 058

REACTIONS (6)
  - Macular degeneration [Not Recovered/Not Resolved]
  - Gallbladder disorder [Recovered/Resolved]
  - Breast pain [Recovered/Resolved]
  - Back pain [Recovered/Resolved]
  - Thyroid disorder [Recovered/Resolved]
  - Chest pain [Recovered/Resolved]
